FAERS Safety Report 10181751 (Version 1)
Quarter: 2014Q2

REPORT INFORMATION
  Report Type: Spontaneous
  Country: US (occurrence: US)
  Receive Date: 20140519
  Receipt Date: 20140519
  Transmission Date: 20141212
  Serious: No
  Sender: FDA-Public Use
  Company Number: US-ASTRAZENECA-2014SE06588

PATIENT
  Age: 71 Year
  Sex: Female
  Weight: 73.9 kg

DRUGS (2)
  1. CANDESARTAN CILEXETIL (PAR) [Suspect]
     Indication: HYPERTENSION
     Route: 048
     Dates: start: 200505
  2. VITAMINS [Concomitant]
     Indication: VITAMIN SUPPLEMENTATION
     Route: 048

REACTIONS (4)
  - Nasopharyngitis [Recovered/Resolved]
  - Ear discomfort [Not Recovered/Not Resolved]
  - Ear discomfort [Not Recovered/Not Resolved]
  - Drug dispensing error [Unknown]
